FAERS Safety Report 4430696-X (Version None)
Quarter: 2004Q3

REPORT INFORMATION
  Report Type: 
  Country: None (occurrence: None)
  Receive Date: 20040721
  Receipt Date: 20040223
  Transmission Date: 20050211
  Serious: Yes (Hospitalization)
  Sender: FDA-Public Use
  Company Number: WAES 0402USA01693

PATIENT
  Age: 56 Year
  Sex: Female

DRUGS (1)
  1. VIOXX [Suspect]
     Indication: JOINT SPRAIN
     Dosage: 12.5 MG/BID/PO
     Route: 048
     Dates: start: 20040219, end: 20040221

REACTIONS (1)
  - GASTRIC PERFORATION [None]
